FAERS Safety Report 21828302 (Version 1)
Quarter: 2023Q1

REPORT INFORMATION
  Report Type: Report from Study
  Country: US (occurrence: US)
  Receive Date: 20230106
  Receipt Date: 20230106
  Transmission Date: 20230417
  Serious: Yes (Hospitalization)
  Sender: FDA-Public Use
  Company Number: US-ABBVIE-4257738

PATIENT
  Age: 80 Year
  Sex: Male

DRUGS (1)
  1. IMBRUVICA [Suspect]
     Active Substance: IBRUTINIB
     Indication: Chronic lymphocytic leukaemia
     Route: 048
     Dates: start: 20220122, end: 20221226

REACTIONS (4)
  - Hip fracture [Unknown]
  - Decubitus ulcer [Unknown]
  - Faecaloma [Unknown]
  - COVID-19 [Unknown]

NARRATIVE: CASE EVENT DATE: 20221226
